FAERS Safety Report 9008125 (Version 1)
Quarter: 2013Q1

REPORT INFORMATION
  Report Type: Spontaneous
  Country: US (occurrence: US)
  Receive Date: 20130111
  Receipt Date: 20130111
  Transmission Date: 20140127
  Serious: Yes (Hospitalization, Other)
  Sender: FDA-Public Use
  Company Number: US-009507513-1301USA001605

PATIENT
  Age: 44 Year
  Sex: Male

DRUGS (6)
  1. SINGULAIR [Suspect]
     Indication: ASTHMA
     Route: 048
  2. DESLORATADINE [Suspect]
     Indication: RHINITIS
     Route: 048
  3. URBANYL [Suspect]
     Route: 048
  4. TEGRETOL [Suspect]
     Indication: EPILEPSY
     Route: 048
  5. DEPAKENE [Suspect]
     Indication: EPILEPSY
     Route: 048
  6. KENZEN [Suspect]
     Indication: HYPERTENSION
     Dosage: 4 MG, UNK
     Route: 048

REACTIONS (6)
  - Miosis [Unknown]
  - Hypothermia [Unknown]
  - Gamma-glutamyltransferase increased [Unknown]
  - Cholinergic syndrome [Unknown]
  - Bradycardia [Unknown]
  - Alanine aminotransferase increased [Unknown]
